FAERS Safety Report 8035683-0 (Version None)
Quarter: 2011Q4

REPORT INFORMATION
  Report Type: 
  Country: None (occurrence: None)
  Receive Date: 20111222
  Receipt Date: 20111212
  Transmission Date: 20120403
  Serious: Yes (Hospitalization)
  Sender: FDA-Public Use
  Company Number: 2011MA017523

PATIENT
  Age: 73 Year
  Sex: Male
  Weight: 117.9352 kg

DRUGS (9)
  1. GLYBURIDE [Concomitant]
  2. ZYLOPRIM [Concomitant]
  3. COUMADIN [Concomitant]
  4. ASPIRINE EC [Concomitant]
  5. DIGOXIN [Suspect]
     Indication: PRODUCT USED FOR UNKNOWN INDICATION
     Dosage: 0.25 MG, 1; PO
     Route: 048
     Dates: start: 20070821, end: 20080201
  6. CRESTOR [Concomitant]
  7. LIPITOR [Concomitant]
  8. LISINOPRIL [Concomitant]
  9. GLUCOVANCE [Concomitant]

REACTIONS (12)
  - DIPLOPIA [None]
  - NYSTAGMUS [None]
  - ATAXIA [None]
  - GLYCOSYLATED HAEMOGLOBIN INCREASED [None]
  - DIZZINESS [None]
  - BLOOD PRESSURE SYSTOLIC INCREASED [None]
  - CEREBROVASCULAR ACCIDENT [None]
  - EPISTAXIS [None]
  - DEVICE DIFFICULT TO USE [None]
  - BASILAR ARTERY STENOSIS [None]
  - DYSPHAGIA [None]
  - ARTERIAL DISORDER [None]
